FAERS Safety Report 7180985-3 (Version None)
Quarter: 2010Q4

REPORT INFORMATION
  Report Type: 
  Country: None (occurrence: None)
  Receive Date: 20101221
  Receipt Date: 20100414
  Transmission Date: 20110411
  Serious: No
  Sender: FDA-Public Use
  Company Number: US-AMGEN-KDL406357

PATIENT

DRUGS (3)
  1. ENBREL [Suspect]
     Indication: RHEUMATOID ARTHRITIS
     Dosage: 50 MG, QWK
     Route: 058
     Dates: start: 20090721
  2. METHOTREXATE [Concomitant]
     Dosage: UNK UNK, UNK
     Dates: start: 20090721
  3. ESOMEPRAZOLE MAGNESIUM [Concomitant]

REACTIONS (5)
  - ADVERSE DRUG REACTION [None]
  - HEADACHE [None]
  - MALAISE [None]
  - PAIN IN JAW [None]
  - REFLUX OESOPHAGITIS [None]
